FAERS Safety Report 5883776-6 (Version None)
Quarter: 2008Q3

REPORT INFORMATION
  Report Type: 
  Country: None (occurrence: None)
  Receive Date: 20080915
  Receipt Date: 20080904
  Transmission Date: 20090109
  Serious: Yes (Hospitalization)
  Sender: FDA-Public Use
  Company Number: A0694997A

PATIENT
  Age: 57 Year
  Sex: Male
  Weight: 75 kg

DRUGS (1)
  1. AVANDIA [Suspect]
     Dosage: 8MG PER DAY
     Route: 048
     Dates: start: 20030101, end: 20070201

REACTIONS (5)
  - CEREBROVASCULAR ACCIDENT [None]
  - CONVULSION [None]
  - HEMIPLEGIA [None]
  - INJURY [None]
  - MYOCARDIAL INFARCTION [None]
